FAERS Safety Report 14359817 (Version 1)
Quarter: 2018Q1

REPORT INFORMATION
  Report Type: Spontaneous
  Country: US (occurrence: US)
  Receive Date: 20180105
  Receipt Date: 20180105
  Transmission Date: 20180509
  Serious: No
  Sender: FDA-Public Use
  Company Number: -SAAVPROD-BI2017BI019583

PATIENT
  Age: 53 Year
  Sex: Female
  Weight: 113 kg

DRUGS (1)
  1. RANITIDINE HYDROCHLORIDE. [Suspect]
     Active Substance: RANITIDINE HYDROCHLORIDE
     Indication: DYSPEPSIA
     Dosage: BID;  FORM STRENGTH: 150 MG; FORMULATION: TABLET? ADMINISTRATION CORRECT? YES ?ACTION(S) TAKEN WITH
     Route: 048
     Dates: start: 20170402, end: 20170404

REACTIONS (1)
  - Nausea [Unknown]

NARRATIVE: CASE EVENT DATE: 20170402
